FAERS Safety Report 15681959 (Version 1)
Quarter: 2018Q4

REPORT INFORMATION
  Report Type: Spontaneous
  Country: FR (occurrence: FR)
  Receive Date: 20181203
  Receipt Date: 20181203
  Transmission Date: 20190205
  Serious: Yes (Life-Threatening)
  Sender: FDA-Public Use
  Company Number: FR-CHIESI USA, INC.-FR-2018CHI000013

PATIENT
  Sex: Male

DRUGS (1)
  1. CUROSURF [Suspect]
     Active Substance: PORACTANT ALFA
     Indication: ACUTE RESPIRATORY DISTRESS SYNDROME
     Dosage: UNK, (1X)

REACTIONS (1)
  - Pneumothorax [Recovering/Resolving]
